FAERS Safety Report 6371907-3 (Version None)
Quarter: 2009Q3

REPORT INFORMATION
  Report Type: 
  Country: None (occurrence: None)
  Receive Date: 20090923
  Receipt Date: 20090916
  Transmission Date: 20100115
  Serious: Yes (Other)
  Sender: FDA-Public Use
  Company Number: ZA-ABBOTT-09P-143-0597571-00

PATIENT
  Sex: Female
  Weight: 75 kg

DRUGS (3)
  1. HUMIRA [Suspect]
     Indication: CROHN'S DISEASE
     Route: 058
     Dates: start: 20090827, end: 20090827
  2. HUMIRA [Suspect]
     Route: 058
     Dates: start: 20090911, end: 20090911
  3. HUMIRA [Suspect]

REACTIONS (4)
  - ABDOMINAL PAIN [None]
  - ACNE [None]
  - INJECTION SITE SWELLING [None]
  - INJECTION SITE URTICARIA [None]
